FAERS Safety Report 23206151 (Version 2)
Quarter: 2024Q2

REPORT INFORMATION
  Report Type: Spontaneous
  Country: VN (occurrence: VN)
  Receive Date: 20231120
  Receipt Date: 20240510
  Transmission Date: 20240715
  Serious: Yes (Other)
  Sender: FDA-Public Use
  Company Number: VN-002147023-NVSC2023VN244904

PATIENT
  Sex: Female

DRUGS (1)
  1. LETROZOLE [Suspect]
     Active Substance: LETROZOLE
     Indication: Product used for unknown indication
     Dosage: UNK
     Route: 065

REACTIONS (11)
  - Breast cancer recurrent [Unknown]
  - Metastases to liver [Unknown]
  - Metastases to bone [Recovering/Resolving]
  - Metastases to meninges [Recovering/Resolving]
  - Injury [Unknown]
  - Bone pain [Recovering/Resolving]
  - Hypoaesthesia [Unknown]
  - Weight decreased [Unknown]
  - Headache [Recovered/Resolved]
  - Drug resistance [Unknown]
  - General physical health deterioration [Unknown]

NARRATIVE: CASE EVENT DATE: 20220601
